FAERS Safety Report 9931711 (Version 2)
Quarter: 2014Q1

REPORT INFORMATION
  Report Type: Spontaneous
  Country: US (occurrence: US)
  Receive Date: 20140228
  Receipt Date: 20140318
  Transmission Date: 20141002
  Serious: Yes (Other)
  Sender: FDA-Public Use
  Company Number: US-JNJFOC-20140214049

PATIENT
  Sex: Female

DRUGS (1)
  1. DURAGESIC [Suspect]
     Indication: PRODUCT USED FOR UNKNOWN INDICATION
     Route: 062
     Dates: end: 20140216

REACTIONS (6)
  - Overdose [Unknown]
  - Drug level increased [Not Recovered/Not Resolved]
  - Mental status changes [Unknown]
  - Withdrawal syndrome [Unknown]
  - Wrong technique in drug usage process [Unknown]
  - Treatment noncompliance [Unknown]
